FAERS Safety Report 8280897-8 (Version None)
Quarter: 2012Q2

REPORT INFORMATION
  Report Type: 
  Country: None (occurrence: None)
  Receive Date: 20120412
  Receipt Date: 20120411
  Transmission Date: 20120825
  Serious: Yes (Death, Hospitalization)
  Sender: FDA-Public Use
  Company Number: US-ABBOTT-12P-163-0924120-00

PATIENT
  Sex: Female

DRUGS (1)
  1. HUMIRA [Suspect]
     Indication: RHEUMATOID ARTHRITIS
     Dates: start: 20080827, end: 20120410

REACTIONS (4)
  - RHEUMATOID ARTHRITIS [None]
  - HOSPITALISATION [None]
  - MALAISE [None]
  - PULMONARY FIBROSIS [None]
